FAERS Safety Report 14196983 (Version 2)
Quarter: 2018Q1

REPORT INFORMATION
  Report Type: Spontaneous
  Country: US (occurrence: US)
  Receive Date: 20171116
  Receipt Date: 20180102
  Transmission Date: 20180508
  Serious: Yes (Other)
  Sender: FDA-Public Use
  Company Number: US-009507513-1711USA003282

PATIENT
  Age: 59 Year
  Sex: Female

DRUGS (2)
  1. SUVOREXANT. [Suspect]
     Active Substance: SUVOREXANT
     Indication: INSOMNIA
     Dosage: 10 MG, HS
     Route: 048
  2. SUVOREXANT. [Suspect]
     Active Substance: SUVOREXANT
     Dosage: 15 MG, HS
     Route: 048

REACTIONS (4)
  - Fatigue [Recovering/Resolving]
  - Drug ineffective [Not Recovered/Not Resolved]
  - Depression [Recovering/Resolving]
  - Suicidal ideation [Recovered/Resolved]
